FAERS Safety Report 4928213-0 (Version None)
Quarter: 2006Q1

REPORT INFORMATION
  Report Type: 
  Country: None (occurrence: None)
  Receive Date: 20060223
  Receipt Date: 20060206
  Transmission Date: 20060701
  Serious: Yes (Hospitalization)
  Sender: FDA-Public Use
  Company Number: NL-JNJFOC-20051202967

PATIENT
  Age: 51 Year
  Sex: Female

DRUGS (12)
  1. RISPERDAL CONSTA [Suspect]
     Indication: DRUG USE FOR UNKNOWN INDICATION
     Dosage: 25 MG, 1 IN 14 DAY, INTRA-MUSCULAR; 37.5 MG, 1 IN 14 DAY, INTRA-MUSCULAR
     Route: 030
     Dates: start: 20050511, end: 20050815
  2. RISPERDAL CONSTA [Suspect]
     Indication: DRUG USE FOR UNKNOWN INDICATION
     Dosage: 25 MG, 1 IN 14 DAY, INTRA-MUSCULAR; 37.5 MG, 1 IN 14 DAY, INTRA-MUSCULAR
     Route: 030
     Dates: start: 20050816, end: 20051122
  3. SEMAP (PENFLURIDOL) [Suspect]
     Indication: DRUG USE FOR UNKNOWN INDICATION
     Dosage: 10 MG, 1 IN 3 DAY, 10 MG, 1 IN 5 DAY, 10 MG, 1 IN 7 DAY
     Dates: start: 20050211, end: 20050918
  4. SEMAP (PENFLURIDOL) [Suspect]
     Indication: DRUG USE FOR UNKNOWN INDICATION
     Dosage: 10 MG, 1 IN 3 DAY, 10 MG, 1 IN 5 DAY, 10 MG, 1 IN 7 DAY
     Dates: start: 20050919, end: 20051125
  5. SEMAP (PENFLURIDOL) [Suspect]
     Indication: DRUG USE FOR UNKNOWN INDICATION
     Dosage: 10 MG, 1 IN 3 DAY, 10 MG, 1 IN 5 DAY, 10 MG, 1 IN 7 DAY
     Dates: start: 20051126, end: 20060104
  6. HALDOL [Suspect]
     Indication: DRUG USE FOR UNKNOWN INDICATION
     Dosage: 2.5 MG, 2 IN 1 DAY
     Dates: start: 20051216, end: 20060104
  7. LITHIUM CARBONATE [Concomitant]
  8. PARNATE [Concomitant]
  9. OXAZEPAM [Concomitant]
  10. THYRAX DUO (LEVOTHYROXINE) [Concomitant]
  11. LORMETAZEPAM [Concomitant]
  12. METAMUCIL-2 [Concomitant]

REACTIONS (15)
  - BRONCHITIS [None]
  - CONFUSIONAL STATE [None]
  - COORDINATION ABNORMAL [None]
  - DELIRIUM [None]
  - DIFFICULTY IN WALKING [None]
  - FALL [None]
  - FEELING ABNORMAL [None]
  - GENERAL PHYSICAL HEALTH DETERIORATION [None]
  - HYPERCALCAEMIA [None]
  - HYPOTHERMIA [None]
  - MUSCULOSKELETAL STIFFNESS [None]
  - SOMNOLENCE [None]
  - SPEECH DISORDER [None]
  - THROMBOCYTOPENIA [None]
  - TREMOR [None]
